FAERS Safety Report 20319364 (Version 3)
Quarter: 2022Q1

REPORT INFORMATION
  Report Type: Report from Study
  Country: CA (occurrence: None)
  Receive Date: 20220110
  Receipt Date: 20220121
  Transmission Date: 20220424
  Serious: Yes (Other)
  Sender: FDA-Public Use
  Company Number: CA-ROCHE-2997297

PATIENT
  Age: 73 Year
  Sex: Male
  Weight: 80.9 kg

DRUGS (21)
  1. MOSUNETUZUMAB [Suspect]
     Active Substance: MOSUNETUZUMAB
     Indication: Non-Hodgkin^s lymphoma
     Dosage: ON 14/DEC/2021, THE PATIENT RECEIVED MOST RECENT DOSE 30 MG PRIOR TO SAE.
     Route: 042
     Dates: start: 20211025
  2. POLATUZUMAB VEDOTIN [Suspect]
     Active Substance: POLATUZUMAB VEDOTIN
     Indication: Non-Hodgkin^s lymphoma
     Dosage: ON 04/JAN/2022, THE PATIENT RECEIVED MOST RECENT DOSE 140 MG PRIOR TO SAE.
     Route: 042
     Dates: start: 20211025
  3. RABEPRAZOLE [Concomitant]
     Active Substance: RABEPRAZOLE
     Route: 048
     Dates: start: 2010
  4. CALCIUM [Concomitant]
     Active Substance: CALCIUM
     Indication: Prophylaxis
     Route: 048
     Dates: start: 202103
  5. LORATADINE [Concomitant]
     Active Substance: LORATADINE
     Route: 048
     Dates: start: 201604
  6. MAGNESIUM OXIDE [Concomitant]
     Active Substance: MAGNESIUM OXIDE
     Indication: Prophylaxis
     Route: 048
     Dates: start: 202104
  7. HERBALS\SENNOSIDES [Concomitant]
     Active Substance: HERBALS\SENNOSIDES
     Indication: Prophylaxis
     Dosage: DRUG DOSE FIRST ADMINISTERED IS 2 TABLET
     Route: 048
     Dates: start: 2021
  8. ACETAMINOPHEN [Concomitant]
     Active Substance: ACETAMINOPHEN
     Route: 048
     Dates: start: 20211016, end: 20211208
  9. BENADRYL [Concomitant]
     Active Substance: DIPHENHYDRAMINE HYDROCHLORIDE
     Route: 048
     Dates: start: 20211021
  10. ALLOPURINOL [Concomitant]
     Active Substance: ALLOPURINOL
     Indication: Prophylaxis
     Route: 048
     Dates: start: 20211022
  11. SULFAMETHOXAZOLE\TRIMETHOPRIM [Concomitant]
     Active Substance: SULFAMETHOXAZOLE\TRIMETHOPRIM
     Indication: Prophylaxis
     Dosage: DRUG DOSE FIRST ADMINISTERED IS 1 TABLET
     Route: 048
     Dates: start: 20211025
  12. VALACYCLOVIR HYDROCHLORIDE [Concomitant]
     Active Substance: VALACYCLOVIR HYDROCHLORIDE
     Indication: Prophylaxis
     Route: 048
     Dates: start: 20211025
  13. MONTELUKAST [Concomitant]
     Active Substance: MONTELUKAST SODIUM
     Indication: Prophylaxis
     Route: 048
     Dates: start: 20211213, end: 20211214
  14. MONTELUKAST [Concomitant]
     Active Substance: MONTELUKAST SODIUM
     Route: 048
     Dates: start: 20220103, end: 20220104
  15. FILGRASTIM [Concomitant]
     Active Substance: FILGRASTIM
     Indication: Prophylaxis
     Dosage: GIVEN FOR PROPHYLAXIS IS YES ;ONGOING: NO
     Route: 048
     Dates: start: 20211218, end: 20211220
  16. METOPROLOL [Concomitant]
     Active Substance: METOPROLOL
     Route: 042
     Dates: start: 20220104, end: 20220104
  17. METOPROLOL [Concomitant]
     Active Substance: METOPROLOL
     Route: 042
     Dates: start: 20220104, end: 20220104
  18. METOPROLOL [Concomitant]
     Active Substance: METOPROLOL
     Dates: start: 20220105
  19. ADENOSINE [Concomitant]
     Active Substance: ADENOSINE
     Route: 042
     Dates: start: 20220104, end: 20220104
  20. SODIUM PHOSPHATE [Concomitant]
     Active Substance: SODIUM PHOSPHATE
     Dosage: 15 OTHER
     Route: 042
     Dates: start: 20220104, end: 20220104
  21. MAGNESIUM SULFATE [Concomitant]
     Active Substance: MAGNESIUM SULFATE
     Route: 042
     Dates: start: 20220104, end: 20220104

REACTIONS (1)
  - Supraventricular tachycardia [Recovered/Resolved]

NARRATIVE: CASE EVENT DATE: 20220104
